FAERS Safety Report 23371130 (Version 3)
Quarter: 2024Q1

REPORT INFORMATION
  Report Type: Other
  Country: NL (occurrence: NL)
  Receive Date: 20240105
  Receipt Date: 20240122
  Transmission Date: 20240410
  Serious: Yes (Other)
  Sender: FDA-Public Use
  Company Number: NL-GLENMARK PHARMACEUTICALS-2023GMK088019

PATIENT

DRUGS (1)
  1. MOMETASONE FUROATE [Suspect]
     Active Substance: MOMETASONE FUROATE
     Indication: Perioral dermatitis
     Dosage: 1 DOSAGE FORM, EVERY 12 HOURS, 2 X PER DAG GELAAT
     Route: 065
     Dates: start: 20220301, end: 20220711

REACTIONS (9)
  - Staphylococcal infection [Not Recovered/Not Resolved]
  - Papule [Not Recovered/Not Resolved]
  - Wound [Not Recovered/Not Resolved]
  - Dermatitis exfoliative generalised [Not Recovered/Not Resolved]
  - Erythema [Not Recovered/Not Resolved]
  - Skin weeping [Not Recovered/Not Resolved]
  - Topical steroid withdrawal reaction [Not Recovered/Not Resolved]
  - Skin burning sensation [Not Recovered/Not Resolved]
  - Pruritus [Not Recovered/Not Resolved]
